FAERS Safety Report 10525173 (Version 1)
Quarter: 2014Q4

REPORT INFORMATION
  Report Type: Spontaneous
  Country: US (occurrence: None)
  Receive Date: 20141015
  Receipt Date: 20141015
  Transmission Date: 20150528
  Serious: No
  Sender: FDA-Public Use
  Company Number: None

PATIENT
  Age: 28 Year
  Sex: Female
  Weight: 100.7 kg

DRUGS (2)
  1. PREDISONE [Suspect]
     Active Substance: PREDNISONE
     Indication: INFLAMMATION
     Route: 048
  2. PREDISONE [Suspect]
     Active Substance: PREDNISONE
     Indication: ASTHMA
     Route: 048

REACTIONS (5)
  - Nausea [None]
  - Vision blurred [None]
  - Dizziness [None]
  - Palpitations [None]
  - Balance disorder [None]

NARRATIVE: CASE EVENT DATE: 20141012
